FAERS Safety Report 8991979 (Version 3)
Quarter: 2013Q1

REPORT INFORMATION
  Report Type: Report from Study
  Country: GB (occurrence: GB)
  Receive Date: 20121231
  Receipt Date: 20130218
  Transmission Date: 20140127
  Serious: Yes (Hospitalization, Other)
  Sender: FDA-Public Use
  Company Number: GB-ASTELLAS-2012US012781

PATIENT
  Age: 70 Year
  Sex: Male
  Weight: 97 kg

DRUGS (5)
  1. BLINDED ENZALUTAMIDE [Suspect]
     Indication: PROSTATE CANCER
     Dosage: 160 MG, UID/QD
     Route: 048
     Dates: start: 20121004, end: 20121217
  2. PROSTAL                            /00093602/ [Concomitant]
     Indication: PROSTATE CANCER
     Dosage: 1125 DF, Q 3 MONTHS
     Route: 058
     Dates: start: 201009
  3. LISINOPRIL [Concomitant]
     Indication: BLOOD PRESSURE INCREASED
     Dosage: 10 MEQ/ML, UID/QD
     Route: 048
     Dates: start: 200810
  4. QUAR-EASIBREATHE [Concomitant]
     Indication: ASTHMA
     Dosage: 50 UG, UID/QD
     Route: 055
     Dates: start: 200810
  5. CALCICHEW [Concomitant]
     Indication: PROSTATE CANCER
     Dosage: 1 DF, UID/QD
     Dates: start: 201009

REACTIONS (1)
  - Paraneoplastic syndrome [Not Recovered/Not Resolved]
